FAERS Safety Report 5710615-6 (Version None)
Quarter: 2008Q2

REPORT INFORMATION
  Report Type: 
  Country: None (occurrence: None)
  Receive Date: 20080415
  Receipt Date: 20080331
  Transmission Date: 20081010
  Serious: Yes (Life-Threatening, Hospitalization)
  Sender: FDA-Public Use
  Company Number: GXKR2008US03406

PATIENT
  Age: 20 Year
  Sex: Female

DRUGS (1)
  1. DOXYCYCLINE [Suspect]
     Indication: ACNE
     Dosage: ORAL
     Route: 048

REACTIONS (15)
  - DRUG RASH WITH EOSINOPHILIA AND SYSTEMIC SYMPTOMS [None]
  - FACE OEDEMA [None]
  - HEPATITIS [None]
  - LYMPHADENOPATHY [None]
  - MULTI-ORGAN DISORDER [None]
  - NEPHRITIS [None]
  - OEDEMA PERIPHERAL [None]
  - ORAL MUCOSAL PETECHIAE [None]
  - PHARYNGEAL OEDEMA [None]
  - PNEUMONITIS [None]
  - PRURITUS GENERALISED [None]
  - PULMONARY OEDEMA [None]
  - PURPURA [None]
  - RASH PUSTULAR [None]
  - RESPIRATORY FAILURE [None]
